FAERS Safety Report 8595967 (Version 2)
Quarter: 2013Q4

REPORT INFORMATION
  Report Type: Spontaneous
  Country: US (occurrence: US)
  Receive Date: 20120605
  Receipt Date: 20131011
  Transmission Date: 20140711
  Serious: Yes (Hospitalization)
  Sender: FDA-Public Use
  Company Number: US-ASTRAZENECA-2012SE35563

PATIENT
  Age: 43 Year
  Sex: Female

DRUGS (9)
  1. NEXIUM [Suspect]
     Indication: GASTROOESOPHAGEAL REFLUX DISEASE
     Route: 048
  2. NEXIUM [Suspect]
     Indication: GASTROOESOPHAGEAL REFLUX DISEASE
     Dosage: THREE TIMES A DAY
     Route: 048
  3. SEROQUEL [Suspect]
     Route: 048
  4. SIMVASTATIN [Concomitant]
  5. SERTRALINE [Concomitant]
  6. LOSARTAN POTASSIUM [Concomitant]
  7. NORCO [Concomitant]
     Indication: PAIN
  8. CORASPCODLE [Concomitant]
     Indication: MUSCLE RELAXANT THERAPY
  9. ROBINUL [Concomitant]
     Indication: NAUSEA

REACTIONS (17)
  - Hiatus hernia [Unknown]
  - Gallbladder disorder [Unknown]
  - Urinary tract infection [Unknown]
  - Cardiac disorder [Unknown]
  - Adverse event [Unknown]
  - Parasite blood test positive [Unknown]
  - Osteoporosis [Unknown]
  - Diabetes mellitus [Unknown]
  - Foot fracture [Unknown]
  - Asthenia [Unknown]
  - Hypoaesthesia [Unknown]
  - Muscle spasms [Unknown]
  - Arthritis [Unknown]
  - Ankle fracture [Unknown]
  - Paraesthesia [Unknown]
  - Dizziness [Unknown]
  - Weight increased [Unknown]
